FAERS Safety Report 9528659 (Version 2)
Quarter: 2013Q3

REPORT INFORMATION
  Report Type: Report from Study
  Country: CA (occurrence: CA)
  Receive Date: 20130917
  Receipt Date: 20130924
  Transmission Date: 20140515
  Serious: Yes (Hospitalization, Other)
  Sender: FDA-Public Use
  Company Number: CA-ALEXION PHARMACEUTICALS INC.-A201302229

PATIENT
  Age: 2 Year
  Sex: Female
  Weight: 12.5 kg

DRUGS (19)
  1. SOLIRIS [Suspect]
     Indication: HAEMOLYTIC URAEMIC SYNDROME
     Dosage: 600 MG, QW
     Route: 042
     Dates: start: 20130828, end: 20130828
  2. SOLIRIS [Suspect]
     Dosage: 300 MG, QW
     Route: 042
     Dates: start: 20130905
  3. AMLODIPINE [Concomitant]
     Indication: HYPERTENSION
     Dosage: 1 MG/ML, 3 ML, BID
     Route: 048
  4. AMOXICILLINE [Concomitant]
     Indication: PROPHYLAXIS
     Dosage: 50 MG/ML, 2 ML BID
     Route: 048
  5. BUDESONIDE [Concomitant]
     Dosage: 3 MG, BID
     Route: 048
  6. VITAMIN D3 [Concomitant]
     Indication: SUPPLEMENTATION THERAPY
     Dosage: 400 UI/ML, 1.5 ML QD
     Route: 048
  7. CLONIDINE [Concomitant]
     Indication: HYPERTENSION
     Dosage: 1 MG/ML, 7 ML QID
     Route: 048
  8. DEFIBROTIDE [Concomitant]
     Indication: ANTICOAGULANT THERAPY
     Dosage: 80 MG/ML, 1.25 ML QID
     Route: 051
  9. FLUCONAZOLE [Concomitant]
     Indication: ANTIFUNGAL TREATMENT
     Dosage: 10 MG/ML, 6 ML QD
     Route: 048
  10. FUROSEMIDE [Concomitant]
     Indication: DIURETIC THERAPY
     Dosage: 10 MG/ML, 1 ML BID
     Route: 048
  11. LABETALOL [Concomitant]
     Indication: HYPERTENSION
     Dosage: 40 MG/ML, 5 ML BID
     Route: 048
  12. MAGNESIUM [Concomitant]
     Indication: SUPPLEMENTATION THERAPY
     Dosage: 50 MG/ML. 5 ML BID
     Route: 048
  13. NIFEDIPINE [Concomitant]
     Indication: HYPERTENSION
     Dosage: 10 MG/ML, 15 ML Q2H PRN
     Route: 048
  14. PENTAMIDINE [Concomitant]
     Indication: PROPHYLAXIS
     Dosage: 150 MG, QMONTH
  15. POTASSIUM [Concomitant]
     Indication: SUPPLEMENTATION THERAPY
     Dosage: 1.33 MMOL/ML, 5 ML BID
     Route: 048
  16. PREDNISONE [Concomitant]
     Dosage: 5 MG/ML, 5 ML BID
     Route: 048
  17. RANITIDINE [Concomitant]
     Indication: GASTROOESOPHAGEAL REFLUX DISEASE
     Dosage: 15 MG/ML, 1.7 ML BID
     Route: 048
  18. SPIRONOLACTONE [Concomitant]
     Dosage: 5 MG/ML, 1 ML, BID
     Route: 048
  19. VASOTEC [Concomitant]
     Indication: HYPERTENSION
     Dosage: UNK
     Dates: end: 20130912

REACTIONS (4)
  - Platelet count decreased [Not Recovered/Not Resolved]
  - Sepsis [Not Recovered/Not Resolved]
  - Haemoglobin decreased [Unknown]
  - Blood creatinine increased [Recovering/Resolving]
